FAERS Safety Report 10909802 (Version 1)
Quarter: 2015Q1

REPORT INFORMATION
  Report Type: Spontaneous
  Country: US (occurrence: US)
  Receive Date: 20150312
  Receipt Date: 20150312
  Transmission Date: 20150721
  Serious: No
  Sender: FDA-Public Use
  Company Number: US-SA-2015SA017631

PATIENT
  Age: 70 Year
  Sex: Female

DRUGS (2)
  1. NASONEX [Concomitant]
     Active Substance: MOMETASONE FUROATE
     Indication: DIZZINESS
     Dosage: DURATION: FOR ABOUT 4 YEARS
     Route: 065
  2. NASACORT ALLERGY 24HR [Suspect]
     Active Substance: TRIAMCINOLONE ACETONIDE
     Indication: DIZZINESS
     Dosage: DOSE: 2 SPRAYS IN  EACH NARES
     Route: 045

REACTIONS (1)
  - Rhinorrhoea [Not Recovered/Not Resolved]
